FAERS Safety Report 15953338 (Version 1)
Quarter: 2019Q1

REPORT INFORMATION
  Report Type: Report from Study
  Country: US (occurrence: US)
  Receive Date: 20190212
  Receipt Date: 20190212
  Transmission Date: 20190417
  Serious: No
  Sender: FDA-Public Use
  Company Number: US-ALEXION PHARMACEUTICALS INC.-A201901991

PATIENT
  Sex: Female

DRUGS (3)
  1. SOLIRIS [Suspect]
     Active Substance: ECULIZUMAB
     Dosage: UNK, Q2W
     Route: 065
  2. SOLIRIS [Suspect]
     Active Substance: ECULIZUMAB
     Indication: ATYPICAL HAEMOLYTIC URAEMIC SYNDROME
     Dosage: UNK
     Route: 042
     Dates: start: 20181121
  3. SOLIRIS [Suspect]
     Active Substance: ECULIZUMAB
     Dosage: UNK, QMONTH
     Route: 065

REACTIONS (6)
  - Protein urine present [Unknown]
  - Haematocrit abnormal [Unknown]
  - Blood lactate dehydrogenase decreased [Unknown]
  - Haemoglobin abnormal [Unknown]
  - Inappropriate schedule of product administration [Unknown]
  - Laboratory test abnormal [Unknown]

NARRATIVE: CASE EVENT DATE: 20190124
